FAERS Safety Report 9576751 (Version 1)
Quarter: 2013Q4

REPORT INFORMATION
  Report Type: Spontaneous
  Country: US (occurrence: US)
  Receive Date: 20131001
  Receipt Date: 20131001
  Transmission Date: 20140711
  Serious: Yes (Other)
  Sender: FDA-Public Use
  Company Number: US-SA-2013SA095218

PATIENT
  Age: 84 Year
  Sex: Female

DRUGS (1)
  1. AVAPRO [Suspect]
     Dosage: PRODUCT START DATE-10 YEARS AGO
     Route: 065

REACTIONS (1)
  - Eye disorder [Unknown]
